FAERS Safety Report 13048791 (Version 2)
Quarter: 2017Q1

REPORT INFORMATION
  Report Type: Report from Study
  Country: IT (occurrence: IT)
  Receive Date: 20161221
  Receipt Date: 20170103
  Transmission Date: 20170428
  Serious: Yes (Other)
  Sender: FDA-Public Use
  Company Number: IT-TEVA-720912ACC

PATIENT
  Age: 34 Year
  Sex: Female

DRUGS (3)
  1. CITALOPRAM GERMED PHARMA - 20 MG COMPRESSE RIVESTITE CON FILM [Suspect]
     Active Substance: CITALOPRAM HYDROBROMIDE
     Indication: DRUG ABUSE
     Dosage: 28 DF TOTAL
     Route: 048
     Dates: start: 20140517, end: 20140517
  2. TRIAZOLAM. [Suspect]
     Active Substance: TRIAZOLAM
     Indication: DRUG ABUSE
     Dosage: 7 DF TOTAL
     Route: 048
     Dates: start: 20140517, end: 20140517
  3. VALIUM [Suspect]
     Active Substance: DIAZEPAM
     Indication: DRUG ABUSE
     Dosage: 10 ML TOTAL
     Route: 048
     Dates: start: 20140517, end: 20140517

REACTIONS (6)
  - Sopor [Recovering/Resolving]
  - Tremor [Recovering/Resolving]
  - Asthenia [Recovering/Resolving]
  - Vomiting [Recovering/Resolving]
  - Drug abuse [Recovering/Resolving]
  - Psychomotor retardation [Recovering/Resolving]

NARRATIVE: CASE EVENT DATE: 20140517
